FAERS Safety Report 21358148 (Version 1)
Quarter: 2022Q3

REPORT INFORMATION
  Report Type: Spontaneous
  Country: CN (occurrence: CN)
  Receive Date: 20220921
  Receipt Date: 20220921
  Transmission Date: 20221027
  Serious: Yes (Other)
  Sender: FDA-Public Use
  Company Number: None

PATIENT
  Age: 55 Year
  Sex: Female
  Weight: 52 kg

DRUGS (6)
  1. CYCLOPHOSPHAMIDE [Suspect]
     Active Substance: CYCLOPHOSPHAMIDE
     Indication: Breast cancer female
     Dosage: 0.9 G , QD, DILUTED WITH SODIUM CHLORIDE (100ML), 1ST CHEMOTHERAPY EC-T PROTOCOL
     Route: 041
     Dates: start: 20220830, end: 20220830
  2. SODIUM CHLORIDE [Suspect]
     Active Substance: SODIUM CHLORIDE
     Indication: Medication dilution
     Dosage: 100 ML, QD, DILUTED IN CYCLOPHOSPHAMIDE FOR INJECTION (0.9 G), 1ST CHEMOTHERAPY EC-T PROTOCOL
     Route: 041
     Dates: start: 20220830, end: 20220830
  3. SODIUM CHLORIDE [Suspect]
     Active Substance: SODIUM CHLORIDE
     Dosage: 250 ML, QD, DILUTED IN DEXAMETHASONE SODIUM PHOSPHATE INJECTION (5 MG), 1ST CHEMOTHERAPY EC-T PROTOC
     Route: 041
     Dates: start: 20220830, end: 20220830
  4. SODIUM CHLORIDE [Suspect]
     Active Substance: SODIUM CHLORIDE
     Dosage: 100 ML, QD, DILUTED IN EPIRUBICIN HYDROCHLORIDE FOR INJECTION (130 MG), 1ST CHEMOTHERAPY EC-T PROTOC
     Route: 041
     Dates: start: 20220830, end: 20220830
  5. DEXAMETHASONE SODIUM PHOSPHATE [Suspect]
     Active Substance: DEXAMETHASONE SODIUM PHOSPHATE
     Indication: Breast cancer female
     Dosage: 5 MG , QD, DILUTED WITH SODIUM CHLORIDE (250ML), 1ST CHEMOTHERAPY EC-T PROTOCOL
     Route: 041
     Dates: start: 20220830, end: 20220830
  6. EPIRUBICIN HYDROCHLORIDE [Suspect]
     Active Substance: EPIRUBICIN HYDROCHLORIDE
     Indication: Breast cancer female
     Dosage: 130 MG , QD, DILUTED WITH SODIUM CHLORIDE (100ML), 1ST CHEMOTHERAPY EC-T PROTOCOL,
     Route: 041
     Dates: start: 20220830, end: 20220830

REACTIONS (3)
  - Nausea [Recovering/Resolving]
  - Vomiting [Recovering/Resolving]
  - Discomfort [Recovering/Resolving]

NARRATIVE: CASE EVENT DATE: 20220830
